FAERS Safety Report 11464987 (Version 1)
Quarter: 2015Q3

REPORT INFORMATION
  Report Type: Spontaneous
  Country: LB (occurrence: LB)
  Receive Date: 20150907
  Receipt Date: 20150907
  Transmission Date: 20151125
  Serious: Yes (Other)
  Sender: FDA-Public Use
  Company Number: LB-ROCHE-1621852

PATIENT
  Age: 65 Year
  Sex: Female
  Weight: 51 kg

DRUGS (20)
  1. ACTEMRA [Suspect]
     Active Substance: TOCILIZUMAB
     Route: 042
     Dates: start: 201411
  2. METHOTREXATE [Suspect]
     Active Substance: METHOTREXATE
     Indication: RHEUMATOID ARTHRITIS
     Route: 048
     Dates: start: 200803, end: 200908
  3. CORTANCYL [Suspect]
     Active Substance: PREDNISONE
     Indication: RHEUMATOID ARTHRITIS
     Route: 048
     Dates: start: 200803, end: 200908
  4. CORTANCYL [Suspect]
     Active Substance: PREDNISONE
     Dosage: DOSE: 20
     Route: 048
     Dates: start: 201003
  5. CONCOR [Concomitant]
     Active Substance: BISOPROLOL FUMARATE
     Indication: HYPERTENSION
     Route: 048
  6. DEPO-MEDROL [Concomitant]
     Active Substance: METHYLPREDNISOLONE ACETATE
     Dosage: DEPOMEDROL GIVEN TO LEFT WRIST,
     Route: 065
     Dates: start: 201401, end: 201401
  7. NIVAQUINE [Concomitant]
     Active Substance: CHLOROQUINE\CHLOROQUINE PHOSPHATE
     Dosage: DOSE 200
     Route: 065
     Dates: start: 200909, end: 201003
  8. ACTEMRA [Suspect]
     Active Substance: TOCILIZUMAB
     Route: 042
     Dates: start: 201303
  9. METHOTREXATE [Suspect]
     Active Substance: METHOTREXATE
     Dosage: DOSE: 5
     Route: 048
     Dates: start: 201205
  10. METHOTREXATE [Suspect]
     Active Substance: METHOTREXATE
     Route: 048
     Dates: start: 201303
  11. CORTANCYL [Suspect]
     Active Substance: PREDNISONE
     Route: 048
     Dates: start: 201202
  12. CORTANCYL [Suspect]
     Active Substance: PREDNISONE
     Route: 048
     Dates: start: 201010
  13. SIMVASTATIN. [Concomitant]
     Active Substance: SIMVASTATIN
     Indication: HYPERLIPIDAEMIA
     Route: 048
  14. METHOTREXATE [Suspect]
     Active Substance: METHOTREXATE
     Dosage: DOSE:5
     Route: 048
     Dates: start: 201401
  15. ACTEMRA [Suspect]
     Active Substance: TOCILIZUMAB
     Indication: RHEUMATOID ARTHRITIS
     Route: 042
     Dates: start: 20120314
  16. ACTEMRA [Suspect]
     Active Substance: TOCILIZUMAB
     Route: 042
     Dates: start: 201401
  17. MICARDIS PLUS [Concomitant]
     Active Substance: HYDROCHLOROTHIAZIDE\TELMISARTAN
     Indication: HYPERTENSION
     Route: 048
  18. METHOTREXATE [Suspect]
     Active Substance: METHOTREXATE
     Dosage: DOSE: 7.5
     Route: 048
     Dates: start: 201202
  19. CORTANCYL [Suspect]
     Active Substance: PREDNISONE
     Route: 048
     Dates: start: 200909
  20. CORTANCYL [Suspect]
     Active Substance: PREDNISONE
     Dosage: DOSE: 10
     Route: 048
     Dates: start: 201405

REACTIONS (1)
  - Osteoporosis [Unknown]

NARRATIVE: CASE EVENT DATE: 20141013
